FAERS Safety Report 5358999-5 (Version None)
Quarter: 2007Q2

REPORT INFORMATION
  Report Type: 
  Country: None (occurrence: None)
  Receive Date: 20070615
  Receipt Date: 20070607
  Transmission Date: 20071010
  Serious: Yes (Other)
  Sender: FDA-Public Use
  Company Number: B0475135A

PATIENT
  Sex: Female

DRUGS (1)
  1. NIQUITIN CQ 2MG LOZENGE [Suspect]
     Indication: DRUG USE FOR UNKNOWN INDICATION
     Dosage: 15LOZ PER DAY
     Route: 002

REACTIONS (2)
  - DRUG ABUSER [None]
  - WEIGHT INCREASED [None]
